FAERS Safety Report 9107840 (Version 1)
Quarter: 2013Q1

REPORT INFORMATION
  Report Type: Spontaneous
  Country: US (occurrence: US)
  Receive Date: 20130221
  Receipt Date: 20130221
  Transmission Date: 20140127
  Serious: No
  Sender: FDA-Public Use
  Company Number: US-009507513-1302USA008897

PATIENT
  Sex: Female

DRUGS (4)
  1. VICTRELIS [Suspect]
     Indication: HEPATITIS C
     Dosage: 800 MG, TID
     Route: 048
     Dates: start: 20121204
  2. PEGASYS [Suspect]
     Dosage: UNK
  3. RIBASPHERE [Suspect]
     Dosage: 600 MG, BID
  4. RIBASPHERE [Suspect]
     Dosage: 400 MG, BID

REACTIONS (1)
  - Laboratory test abnormal [Unknown]
